FAERS Safety Report 6291408-0 (Version None)
Quarter: 2009Q3

REPORT INFORMATION
  Report Type: 
  Country: None (occurrence: None)
  Receive Date: 20090730
  Receipt Date: 20090717
  Transmission Date: 20100115
  Serious: Yes (Other)
  Sender: FDA-Public Use
  Company Number: JP-MYLANLABS-2009S1012625

PATIENT
  Age: 67 Year
  Sex: Female

DRUGS (1)
  1. TICLOPIDINE HCL [Suspect]
     Indication: ANTIPLATELET THERAPY
     Route: 048

REACTIONS (1)
  - INTERSTITIAL LUNG DISEASE [None]
